FAERS Safety Report 16557989 (Version 1)
Quarter: 2019Q3

REPORT INFORMATION
  Report Type: Spontaneous
  Country: US (occurrence: US)
  Receive Date: 20190529
  Receipt Date: 20190529
  Transmission Date: 20191004
  Serious: Yes (Hospitalization, Other)
  Sender: FDA-Public Use
  Company Number: None

PATIENT
  Age: 57 Year
  Sex: Female
  Weight: 73.6 kg

DRUGS (7)
  1. LYRICA [Concomitant]
     Active Substance: PREGABALIN
  2. SYNTHROID [Concomitant]
     Active Substance: LEVOTHYROXINE SODIUM
  3. APIXABAN [Suspect]
     Active Substance: APIXABAN
     Indication: DEEP VEIN THROMBOSIS
     Dosage: ?          OTHER DOSE:2.5 OR 5.0 MG;?
     Route: 048
     Dates: start: 2019, end: 20190528
  4. DECADRON [Concomitant]
     Active Substance: DEXAMETHASONE
  5. ASPIRIN. [Concomitant]
     Active Substance: ASPIRIN
  6. MARINOL [Concomitant]
     Active Substance: DRONABINOL
  7. LETROZOLE. [Concomitant]
     Active Substance: LETROZOLE

REACTIONS (3)
  - Embolic stroke [None]
  - Deep vein thrombosis [None]
  - Troponin I increased [None]

NARRATIVE: CASE EVENT DATE: 20190528
